FAERS Safety Report 5966775-5 (Version None)
Quarter: 2008Q4

REPORT INFORMATION
  Report Type: 
  Country: None (occurrence: None)
  Receive Date: 20081125
  Receipt Date: 20081119
  Transmission Date: 20090506
  Serious: Yes (Hospitalization)
  Sender: FDA-Public Use
  Company Number: US-B.I. PHARMACEUTICALS,INC./RIDGEFIELD-2008-DE-07107GD

PATIENT
  Age: 58 Year
  Sex: Male

DRUGS (5)
  1. DIPYRIDAMOLE [Suspect]
     Indication: THROMBOSIS PROPHYLAXIS
     Dosage: 225 MG - 900 MG
     Route: 048
  2. ASPIRIN [Suspect]
     Indication: THROMBOSIS PROPHYLAXIS
     Dosage: 81 - 162 MG
     Route: 048
  3. PENTOXIFYLLINE [Suspect]
     Indication: THROMBOSIS PROPHYLAXIS
     Dosage: 600 - 1200 MG
     Route: 048
  4. BIVALIRUDIN [Suspect]
     Indication: THROMBOSIS PROPHYLAXIS
     Dosage: STARTED ON DAY 5, 0.005 - 0.02 MG/KG/H, ADJUSTED ACCORDING TO THROMBOELASTOGRAPHY PARAMETERS
  5. WARFARIN SODIUM [Suspect]
     Indication: THROMBOSIS PROPHYLAXIS
     Dosage: STARTED ON DAY 9, 2 - 7.5 MG
     Route: 048

REACTIONS (5)
  - BLOOD PRESSURE DECREASED [None]
  - DEEP VEIN THROMBOSIS [None]
  - GASTROINTESTINAL DISORDER [None]
  - HYPOCOAGULABLE STATE [None]
  - POST PROCEDURAL HAEMORRHAGE [None]
